FAERS Safety Report 20001031 (Version 1)
Quarter: 2021Q4

REPORT INFORMATION
  Report Type: Spontaneous
  Country: BR (occurrence: BR)
  Receive Date: 20211027
  Receipt Date: 20211027
  Transmission Date: 20220303
  Serious: Yes (Hospitalization, Other)
  Sender: FDA-Public Use
  Company Number: BR-SUN PHARMACEUTICAL INDUSTRIES LTD-2021R1-314878

PATIENT
  Age: 60 Year
  Sex: Female

DRUGS (1)
  1. CARVEDILOL [Suspect]
     Active Substance: CARVEDILOL
     Indication: Atrial tachycardia
     Dosage: 6.25 MG MID
     Route: 065

REACTIONS (6)
  - Drug ineffective [Unknown]
  - Atrial fibrillation [Unknown]
  - Pulmonary congestion [Unknown]
  - Sinus bradycardia [Unknown]
  - Loss of consciousness [Unknown]
  - Cardio-respiratory arrest [Unknown]
